FAERS Safety Report 23404715 (Version 1)
Quarter: 2024Q1

REPORT INFORMATION
  Report Type: Spontaneous
  Country: US (occurrence: US)
  Receive Date: 20240116
  Receipt Date: 20240116
  Transmission Date: 20240410
  Serious: No
  Sender: FDA-Public Use
  Company Number: US-PERRIGO-23US013673

PATIENT

DRUGS (1)
  1. PERMETHRIN [Suspect]
     Active Substance: PERMETHRIN
     Indication: Lice infestation
     Dosage: UNKNOWN, UNKNOWN
     Route: 061

REACTIONS (2)
  - Therapeutic product ineffective for unapproved indication [Recovered/Resolved]
  - Product administered at inappropriate site [Recovered/Resolved]
